FAERS Safety Report 6860718-8 (Version None)
Quarter: 2010Q3

REPORT INFORMATION
  Report Type: 
  Country: None (occurrence: None)
  Receive Date: 20100720
  Receipt Date: 20100706
  Transmission Date: 20110219
  Serious: Yes (Other)
  Sender: FDA-Public Use
  Company Number: PHEH2006US11230

PATIENT
  Sex: Male
  Weight: 66.666 kg

DRUGS (26)
  1. AREDIA [Suspect]
     Indication: METASTASES TO BONE
     Dosage: 90 MG MONTHLY
     Dates: start: 20030204, end: 20031118
  2. ZOMETA [Suspect]
     Indication: METASTASES TO BONE
     Dosage: UNK, UNK
     Dates: start: 20020101, end: 20030201
  3. ZOMETA [Suspect]
     Dosage: MONTHLY
     Dates: start: 20031209, end: 20041001
  4. ZOMETA [Suspect]
     Dosage: 4 MG MONTHLY
     Dates: start: 20050601, end: 20050803
  5. ZOMETA [Suspect]
     Dosage: EVERY TWO MONTHS
     Dates: start: 20050803, end: 20060406
  6. CELEBREX [Concomitant]
     Dosage: 200 MG, BID
  7. PREDNISONE [Concomitant]
     Dosage: 60 MG, 5 DAYS/MONTH
  8. VALIUM [Concomitant]
     Dosage: 10 MG, PRN
  9. CLINDAMYCIN HYDROCHLORIDE [Concomitant]
     Dosage: 150 MG, BID
     Route: 048
  10. PREVACID [Concomitant]
     Dosage: 1 TAB, QD
     Route: 048
  11. XANAX [Concomitant]
     Dosage: 5 MG, PRN
     Route: 048
  12. ROXANOL [Concomitant]
     Dosage: UNK
  13. AMBIEN [Concomitant]
     Dosage: 5 MG, PRN
     Route: 048
  14. DECADRON [Concomitant]
     Dosage: UNK
     Route: 048
  15. PAXIL [Concomitant]
     Dosage: UNK
     Route: 048
  16. DOLOBID [Concomitant]
     Dosage: 4 MG, QD
     Route: 048
  17. PHENERGAN ^AVENTIS PHARMA^ [Concomitant]
     Dosage: 12.5 MG, PRN
     Route: 048
  18. VICODIN [Concomitant]
     Dosage: UNK
     Route: 048
  19. ZOFRAN [Concomitant]
     Dosage: 32 MG, PRN
     Route: 048
  20. VINCRISTINE [Concomitant]
     Dosage: 2 MG, UNK
  21. LYRICA [Concomitant]
     Dosage: 75 MG, BID
     Route: 048
  22. AVELOX [Concomitant]
     Dosage: 400 MG, QD
     Route: 048
  23. NEURONTIN [Concomitant]
     Dosage: 100 MG, TID
     Route: 048
  24. KYTRIL [Concomitant]
     Dosage: UNK
  25. CEPHALEXIN [Concomitant]
     Dosage: 250 MG, QD
     Route: 048
  26. ATIVAN [Concomitant]
     Dosage: 1 MG, PRN
     Route: 048

REACTIONS (48)
  - ABDOMINAL PAIN UPPER [None]
  - ANHEDONIA [None]
  - ANXIETY [None]
  - ASTHENIA [None]
  - BACK PAIN [None]
  - BONE DISORDER [None]
  - BONE LESION [None]
  - BONE OPERATION [None]
  - BRONCHITIS [None]
  - CEREBROVASCULAR ACCIDENT [None]
  - CHEST WALL MASS [None]
  - DEBRIDEMENT [None]
  - DEHYDRATION [None]
  - DEPRESSION [None]
  - DIARRHOEA [None]
  - DRUG SCREEN POSITIVE [None]
  - DYSURIA [None]
  - EATING DISORDER [None]
  - ERECTILE DYSFUNCTION [None]
  - FATIGUE [None]
  - GENERAL PHYSICAL HEALTH DETERIORATION [None]
  - HEADACHE [None]
  - HUMERUS FRACTURE [None]
  - HYPONATRAEMIA [None]
  - IMPAIRED HEALING [None]
  - INFLAMMATION [None]
  - INSOMNIA [None]
  - LEUKOPENIA [None]
  - LYMPHADENOPATHY [None]
  - MULTIPLE MYELOMA [None]
  - MYALGIA [None]
  - NAUSEA [None]
  - NEOPLASM RECURRENCE [None]
  - NIGHT SWEATS [None]
  - ORAL DISORDER [None]
  - ORAL PAIN [None]
  - OSTEOMYELITIS [None]
  - OSTEONECROSIS OF JAW [None]
  - PAIN [None]
  - PARAESTHESIA [None]
  - PHLEBITIS SUPERFICIAL [None]
  - PRIMARY SEQUESTRUM [None]
  - PYREXIA [None]
  - RIB FRACTURE [None]
  - SEQUESTRECTOMY [None]
  - SWELLING [None]
  - TOOTH EXTRACTION [None]
  - WEIGHT DECREASED [None]
